FAERS Safety Report 14300716 (Version 1)
Quarter: 2017Q4

REPORT INFORMATION
  Report Type: Spontaneous
  Country: US (occurrence: US)
  Receive Date: 20171218
  Receipt Date: 20171218
  Transmission Date: 20180321
  Serious: Yes (Life-Threatening, Hospitalization)
  Sender: FDA-Public Use
  Company Number: None

PATIENT
  Age: 80 Year
  Sex: Male
  Weight: 67 kg

DRUGS (1)
  1. WARFARIN [Suspect]
     Active Substance: WARFARIN
     Indication: ATRIAL FIBRILLATION
     Route: 048
     Dates: start: 20130427, end: 20171202

REACTIONS (9)
  - Urinary tract infection [None]
  - Confusional state [None]
  - Haemorrhage intracranial [None]
  - Pneumonia [None]
  - Aphasia [None]
  - Hypotension [None]
  - Lethargy [None]
  - Pulmonary mass [None]
  - Hypertension [None]

NARRATIVE: CASE EVENT DATE: 20171127
